FAERS Safety Report 5415528-5 (Version None)
Quarter: 2007Q3

REPORT INFORMATION
  Report Type: 
  Country: None (occurrence: None)
  Receive Date: 20070815
  Receipt Date: 20070809
  Transmission Date: 20080115
  Serious: Yes (Hospitalization)
  Sender: FDA-Public Use
  Company Number: A0669187A

PATIENT
  Age: 59 Year
  Sex: Female

DRUGS (4)
  1. AVANDIA [Suspect]
     Dosage: 10MG TWICE PER DAY
     Route: 048
     Dates: start: 20060101
  2. PLAVIX [Concomitant]
  3. TOPROL-XL [Concomitant]
  4. DIAVAN [Concomitant]

REACTIONS (1)
  - CARDIAC FAILURE CONGESTIVE [None]
